FAERS Safety Report 10577416 (Version 2)
Quarter: 2014Q4

REPORT INFORMATION
  Report Type: Spontaneous
  Country: US (occurrence: US)
  Receive Date: 20141111
  Receipt Date: 20141117
  Transmission Date: 20150529
  Serious: Yes (Other)
  Sender: FDA-Public Use
  Company Number: US-UNITED THERAPEUTICS-UNT-2014-010560

PATIENT
  Sex: Female
  Weight: 51.25 kg

DRUGS (5)
  1. LETAIRIS [Suspect]
     Active Substance: AMBRISENTAN
     Indication: PRODUCT USED FOR UNKNOWN INDICATION
     Dosage: 5 MG, QD
     Route: 065
     Dates: start: 20110224
  2. ORENITRAM [Suspect]
     Active Substance: TREPROSTINIL
     Dosage: 0.375 MG, Q8H
     Route: 048
     Dates: start: 20141104
  3. REVATIO [Concomitant]
     Active Substance: SILDENAFIL CITRATE
     Indication: PRODUCT USED FOR UNKNOWN INDICATION
  4. ORENITRAM [Suspect]
     Active Substance: TREPROSTINIL
     Indication: PULMONARY HYPERTENSION
     Dosage: 1.75 MG, Q8H
     Route: 048
     Dates: start: 20140528
  5. ORENITRAM [Suspect]
     Active Substance: TREPROSTINIL
     Dosage: 2 MG, Q8H
     Route: 048
     Dates: start: 20141104

REACTIONS (3)
  - Pain in extremity [Unknown]
  - Headache [Unknown]
  - Atrial flutter [Unknown]

NARRATIVE: CASE EVENT DATE: 2014
